FAERS Safety Report 10418354 (Version 2)
Quarter: 2014Q3

REPORT INFORMATION
  Report Type: Spontaneous
  Country: US (occurrence: None)
  Receive Date: 20140827
  Receipt Date: 20140902
  Transmission Date: 20150326
  Serious: Yes (Other)
  Sender: FDA-Public Use
  Company Number: ADR-2014-01507

PATIENT
  Age: 65 Year
  Sex: Male

DRUGS (3)
  1. BACLOFEN INTRATHECAL [Suspect]
     Active Substance: BACLOFEN
     Indication: MUSCLE SPASTICITY
  2. MORPHINE (INTRATHECAL) [Suspect]
     Active Substance: MORPHINE
  3. ASPIRIN. [Suspect]
     Active Substance: ASPIRIN

REACTIONS (4)
  - Catheter site erythema [None]
  - Depressed level of consciousness [None]
  - Implant site haemorrhage [None]
  - Implant site haematoma [None]
